FAERS Safety Report 6303910-3 (Version None)
Quarter: 2009Q3

REPORT INFORMATION
  Report Type: 
  Country: None (occurrence: None)
  Receive Date: 20090810
  Receipt Date: 20090810
  Transmission Date: 20100115
  Serious: Yes (Other)
  Sender: FDA-Public Use
  Company Number: None

PATIENT
  Sex: Male
  Weight: 90.7194 kg

DRUGS (2)
  1. ZICAM COLD REMEDY NASAL GEL [Suspect]
     Indication: NASOPHARYNGITIS
     Dosage: 1 SQUIRT TWICE NOSTRIL
     Dates: start: 20090321
  2. ZICAM COLD REMEDY NASAL GEL [Suspect]
     Indication: NASOPHARYNGITIS
     Dosage: 1 SQUIRT TWICE NOSTRIL
     Dates: start: 20090322

REACTIONS (3)
  - ANOSMIA [None]
  - HYPOGEUSIA [None]
  - PAROSMIA [None]
